FAERS Safety Report 8985727 (Version 1)
Quarter: 2012Q4

REPORT INFORMATION
  Report Type: 
  Country: ES (occurrence: ES)
  Receive Date: 20121226
  Receipt Date: 20121226
  Transmission Date: 20130627
  Serious: Yes (Hospitalization)
  Sender: FDA-Public Use
  Company Number: ES-ELI_LILLY_AND_COMPANY-ES201212005564

PATIENT
  Sex: Female

DRUGS (2)
  1. FORSTEO [Suspect]
     Dosage: UNK
     Dates: start: 20120325
  2. FORSTEO [Suspect]
     Dosage: UNK

REACTIONS (2)
  - Cerebral haematoma [Unknown]
  - Head injury [Unknown]
